FAERS Safety Report 12259354 (Version 1)
Quarter: 2016Q2

REPORT INFORMATION
  Report Type: Spontaneous
  Country: US (occurrence: US)
  Receive Date: 20160412
  Receipt Date: 20160412
  Transmission Date: 20160815
  Serious: No
  Sender: FDA-Public Use
  Company Number: US-SA-2015SA079984

PATIENT
  Age: 76 Year
  Sex: Female

DRUGS (1)
  1. ALLEGRA [Suspect]
     Active Substance: FEXOFENADINE HYDROCHLORIDE
     Indication: PRURITUS
     Dosage: START DATE: 30MAY OR 31MAY2015?STOP DATE: 30MAY OR 31MAY2015?ALLEGRA ALLERGY 24 HOUR GELCAP OTC
     Route: 065
     Dates: start: 201505, end: 201505

REACTIONS (3)
  - Dizziness [Recovered/Resolved]
  - Drug ineffective [Unknown]
  - Anxiety [Recovered/Resolved]
